FAERS Safety Report 8216301-5 (Version None)
Quarter: 2012Q1

REPORT INFORMATION
  Report Type: 
  Country: None (occurrence: None)
  Receive Date: 20120316
  Receipt Date: 20120308
  Transmission Date: 20120608
  Serious: Yes (Hospitalization)
  Sender: FDA-Public Use
  Company Number: PHHY2012IL021059

PATIENT
  Age: 85 Year
  Sex: Female
  Weight: 50 kg

DRUGS (2)
  1. SANDOSTATIN LAR [Suspect]
     Dosage: 30 MG EVERY 28 DAYS
     Dates: start: 20120307
  2. SANDOSTATIN LAR [Suspect]
     Indication: ACROMEGALY
     Dosage: 30 MG EVERY 28 DAYS
     Dates: start: 20080603

REACTIONS (2)
  - BACK PAIN [None]
  - URINARY TRACT INFECTION [None]
